FAERS Safety Report 7037708-8 (Version None)
Quarter: 2010Q4

REPORT INFORMATION
  Report Type: 
  Country: None (occurrence: None)
  Receive Date: 20101011
  Receipt Date: 20101004
  Transmission Date: 20110411
  Serious: Yes (Other)
  Sender: FDA-Public Use
  Company Number: GB-MERCK-1010USA00731

PATIENT
  Age: 48 Year
  Sex: Male

DRUGS (8)
  1. DECADRON [Suspect]
     Indication: MULTIPLE MYELOMA
     Route: 048
  2. CYCLOPHOSPHAMIDE [Suspect]
     Indication: MULTIPLE MYELOMA
     Route: 065
  3. THALIDOMIDE [Suspect]
     Indication: MULTIPLE MYELOMA
     Route: 065
  4. LANSOPRAZOLE [Suspect]
     Indication: MULTIPLE MYELOMA
     Route: 065
  5. ALFACALCIDOL [Suspect]
     Indication: MULTIPLE MYELOMA
     Route: 065
  6. PENICILLIN V [Suspect]
     Indication: PROPHYLAXIS
     Route: 065
  7. SULFAMETHOXAZOLE AND TRIMETHOPRIM [Suspect]
     Indication: PROPHYLAXIS
     Route: 065
  8. ACYCLOVIR [Suspect]
     Indication: PROPHYLAXIS
     Route: 065

REACTIONS (2)
  - FOLLICULAR MUCINOSIS [None]
  - RASH PAPULAR [None]
